FAERS Safety Report 8443703-4 (Version None)
Quarter: 2012Q2

REPORT INFORMATION
  Report Type: 
  Country: None (occurrence: None)
  Receive Date: 20120618
  Receipt Date: 20120608
  Transmission Date: 20120825
  Serious: Yes (Hospitalization)
  Sender: FDA-Public Use
  Company Number: US-BAYER-2012-003163

PATIENT
  Age: 45 Year
  Sex: Female
  Weight: 74.83 kg

DRUGS (5)
  1. ASPIRIN [Concomitant]
     Dosage: 81 MG, DAILY
     Route: 048
     Dates: start: 20080110
  2. DARVOCET [Concomitant]
     Dosage: EVERY 8 HOURS AS NEEDED
  3. SERTRALINE HYDROCHLORIDE [Concomitant]
     Dosage: 50 MG, DAILY
  4. XANAX [Concomitant]
     Indication: ANXIETY
  5. YAZ [Suspect]
     Dosage: UNK
     Dates: start: 20070701, end: 20080101

REACTIONS (3)
  - PAIN [None]
  - PULMONARY EMBOLISM [None]
  - FEAR OF DISEASE [None]
